FAERS Safety Report 16852142 (Version 3)
Quarter: 2020Q3

REPORT INFORMATION
  Report Type: Spontaneous
  Country: US (occurrence: US)
  Receive Date: 20190925
  Receipt Date: 20200916
  Transmission Date: 20201102
  Serious: Yes (Other)
  Sender: FDA-Public Use
  Company Number: US-PFIZER INC-2019415634

PATIENT
  Age: 61 Year
  Sex: Female
  Weight: 87.08 kg

DRUGS (3)
  1. ATIVAN [Concomitant]
     Active Substance: LORAZEPAM
     Dosage: 1 MG, AS NEEDED (ATIVAN 1MG ? 1 TAB BID; TAKEN PRN FOR MANY YRS)
  2. VENLAFAXINE HCL [Suspect]
     Active Substance: VENLAFAXINE HYDROCHLORIDE
     Indication: DEPRESSION
     Dosage: 150 MG, 2X/DAY
  3. VENLAFAXINE HCL [Suspect]
     Active Substance: VENLAFAXINE HYDROCHLORIDE
     Indication: PANIC DISORDER

REACTIONS (8)
  - Drug ineffective [Unknown]
  - Nightmare [Recovering/Resolving]
  - Type 1 diabetes mellitus [Unknown]
  - Anxiety [Recovering/Resolving]
  - Hyperhidrosis [Recovering/Resolving]
  - Shock [Recovering/Resolving]
  - Mood altered [Recovering/Resolving]
  - Chills [Recovering/Resolving]
